FAERS Safety Report 25763565 (Version 1)
Quarter: 2025Q3

REPORT INFORMATION
  Report Type: Spontaneous
  Country: US (occurrence: US)
  Receive Date: 20250905
  Receipt Date: 20250905
  Transmission Date: 20251021
  Serious: No
  Sender: DOMPE FARMACEUTICI
  Company Number: US-FARMAPROD-202410-3674

PATIENT
  Sex: Female

DRUGS (13)
  1. OXERVATE [Suspect]
     Active Substance: CENEGERMIN-BKBJ
     Indication: Neurotrophic keratopathy
     Route: 047
     Dates: start: 20241014
  2. REFRESH TEARS [Concomitant]
     Active Substance: CARBOXYMETHYLCELLULOSE SODIUM
  3. MELATONIN [Concomitant]
     Active Substance: MELATONIN
  4. VEOZAH [Concomitant]
     Active Substance: FEZOLINETANT
  5. FISH OIL [Concomitant]
     Active Substance: FISH OIL
  6. VITAMIN D-400 [Concomitant]
  7. ASPIRIN [Concomitant]
     Active Substance: ASPIRIN
  8. PROTONIX [Concomitant]
     Active Substance: PANTOPRAZOLE SODIUM
  9. ELIQUIS [Concomitant]
     Active Substance: APIXABAN
  10. BIOTRUE HYDRATION BOOST [Concomitant]
     Active Substance: GLYCERIN
  11. UNSPECIFIED INGREDIENT [Concomitant]
     Active Substance: UNSPECIFIED INGREDIENT
  12. PREDNISOLONE-BROMFENAC [Concomitant]
  13. ELAHERE [Concomitant]
     Active Substance: MIRVETUXIMAB SORAVTANSINE-GYNX

REACTIONS (1)
  - Eye pain [Not Recovered/Not Resolved]
